FAERS Safety Report 5590854-8 (Version None)
Quarter: 2008Q1

REPORT INFORMATION
  Report Type: 
  Country: None (occurrence: None)
  Receive Date: 20080110
  Receipt Date: 20071226
  Transmission Date: 20080703
  Serious: Yes (Hospitalization)
  Sender: FDA-Public Use
  Company Number: DSA_31141_2008

PATIENT
  Age: 86 Year
  Sex: Female

DRUGS (14)
  1. DILTIAZEM (BI-TILDIEM - DILTIAZEM HYDROCHLORIDE) 120 MG (BIOVAIL) [Suspect]
     Indication: DRUG USE FOR UNKNOWN INDICATION
     Dosage: (DF ORAL)
     Route: 048
  2. TEGRETOL [Suspect]
     Indication: FACIAL NEURALGIA
     Dosage: (400 MG ORAL), (200 MG TID ORAL), (DF ORAL)
     Route: 048
     Dates: start: 20070904
  3. TEGRETOL [Suspect]
     Indication: FACIAL NEURALGIA
     Dosage: (400 MG ORAL), (200 MG TID ORAL), (DF ORAL)
     Route: 048
     Dates: start: 20070904
  4. TEGRETOL [Suspect]
     Indication: FACIAL NEURALGIA
     Dosage: (400 MG ORAL), (200 MG TID ORAL), (DF ORAL)
     Route: 048
     Dates: start: 20070908
  5. LYRICA [Suspect]
     Indication: FACIAL NEURALGIA
     Dosage: (DF ORAL)
     Route: 048
     Dates: start: 20070904, end: 20070908
  6. GABAPENTIN [Concomitant]
  7. RIVOTRIL [Concomitant]
  8. SPIRONOLACTONE [Concomitant]
  9. PLAVIX [Concomitant]
  10. BETASERC /00141802/ [Concomitant]
  11. ADANCOR [Concomitant]
  12. MOVICOL /01749801/ [Concomitant]
  13. LANZOR [Concomitant]
  14. IXPRIM [Concomitant]

REACTIONS (11)
  - CREATININE RENAL CLEARANCE DECREASED [None]
  - DRUG INTERACTION [None]
  - ECCHYMOSIS [None]
  - FALL [None]
  - HAND FRACTURE [None]
  - HEADACHE [None]
  - HYPOKALAEMIA [None]
  - HYPONATRAEMIA [None]
  - NAUSEA [None]
  - SOMNOLENCE [None]
  - VOMITING [None]
